FAERS Safety Report 6589736-4 (Version None)
Quarter: 2010Q1

REPORT INFORMATION
  Report Type: 
  Country: None (occurrence: None)
  Receive Date: 20100219
  Receipt Date: 20100207
  Transmission Date: 20100710
  Serious: Yes (Hospitalization)
  Sender: FDA-Public Use
  Company Number: IT-RANBAXY-2010RR-31001

PATIENT
  Sex: Female

DRUGS (1)
  1. LORAZEPAM [Suspect]

REACTIONS (2)
  - HYPONATRAEMIA [None]
  - HYPONATRAEMIC SYNDROME [None]
